FAERS Safety Report 22046039 (Version 2)
Quarter: 2023Q1

REPORT INFORMATION
  Report Type: Report from Study
  Country: US (occurrence: US)
  Receive Date: 20230228
  Receipt Date: 20230328
  Transmission Date: 20230417
  Serious: Yes (Other)
  Sender: FDA-Public Use
  Company Number: US-002147023-NVSC2023US040672

PATIENT
  Sex: Male

DRUGS (1)
  1. ENTRESTO [Suspect]
     Active Substance: SACUBITRIL\VALSARTAN
     Indication: Product used for unknown indication
     Dosage: UNK
     Route: 065
     Dates: start: 202301

REACTIONS (7)
  - Chronic obstructive pulmonary disease [Unknown]
  - Cough [Unknown]
  - Atrial fibrillation [Unknown]
  - Throat clearing [Unknown]
  - Seasonal allergy [Unknown]
  - Hypotension [Unknown]
  - Dizziness [Unknown]
